FAERS Safety Report 5317747-5 (Version None)
Quarter: 2007Q2

REPORT INFORMATION
  Report Type: 
  Country: None (occurrence: None)
  Receive Date: 20070503
  Receipt Date: 20070503
  Transmission Date: 20071010
  Serious: Yes (Hospitalization, Disabling, Other)
  Sender: FDA-Public Use
  Company Number: None

PATIENT
  Age: 48 Year
  Sex: Female
  Weight: 81.6475 kg

DRUGS (3)
  1. ZELNORM [Suspect]
     Indication: CONSTIPATION
     Dosage: 6 MG, 1 TABLET THREE TIMES/DAY ORAL
     Route: 048
     Dates: start: 20051213
  2. PERCOCET [Concomitant]
  3. PAXIL [Concomitant]

REACTIONS (8)
  - BLOOD PRESSURE INCREASED [None]
  - BURNING SENSATION [None]
  - GAIT DISTURBANCE [None]
  - HYPOAESTHESIA [None]
  - MUSCLE SPASMS [None]
  - OEDEMA PERIPHERAL [None]
  - PAIN IN EXTREMITY [None]
  - THERMAL BURN [None]
